FAERS Safety Report 4878416-9 (Version None)
Quarter: 2005Q4

REPORT INFORMATION
  Report Type: 
  Country: None (occurrence: None)
  Receive Date: 20051213
  Receipt Date: 20041214
  Transmission Date: 20060501
  Serious: Yes (Hospitalization)
  Sender: FDA-Public Use
  Company Number: 2004112623

PATIENT
  Age: 29 Year
  Sex: Female

DRUGS (2)
  1. XANAX [Suspect]
     Indication: ANXIETY
     Dosage: 16 TABLETS (ONCE), ORAL
     Route: 048
     Dates: start: 20041127, end: 20041127
  2. ESCITALOPRAM (ESCITALOPRAM) [Suspect]
     Indication: OBSESSIVE-COMPULSIVE DISORDER
     Dosage: 40 MG (20 MG, 1 IN 2 D), ORAL
     Route: 048
     Dates: start: 20040501

REACTIONS (2)
  - DEPRESSION [None]
  - SUICIDE ATTEMPT [None]
